FAERS Safety Report 7482801-9 (Version None)
Quarter: 2011Q2

REPORT INFORMATION
  Report Type: 
  Country: None (occurrence: None)
  Receive Date: 20110516
  Receipt Date: 20110504
  Transmission Date: 20111010
  Serious: Yes (Other)
  Sender: FDA-Public Use
  Company Number: FR-BAYER-2011-038536

PATIENT
  Age: 76 Year
  Sex: Male

DRUGS (5)
  1. CEFEPIME [Suspect]
     Indication: PRODUCT USED FOR UNKNOWN INDICATION
     Dosage: UNK
     Dates: start: 20110207, end: 20110221
  2. CIPROFLOXACIN [Suspect]
     Indication: PRODUCT USED FOR UNKNOWN INDICATION
     Dosage: UNK
     Dates: start: 20110207, end: 20110221
  3. GENTAMICINE SULFATE [Suspect]
     Indication: PRODUCT USED FOR UNKNOWN INDICATION
     Dosage: UNK
     Dates: start: 20110207, end: 20110216
  4. RIFADIN [Concomitant]
     Dosage: 900 MG, UNK
     Dates: start: 20110216
  5. VANCOMYCIN [Suspect]
     Indication: PRODUCT USED FOR UNKNOWN INDICATION
     Dosage: 1 G, UNK
     Route: 042
     Dates: start: 20110207, end: 20110221

REACTIONS (1)
  - RENAL FAILURE ACUTE [None]
